FAERS Safety Report 13287300 (Version 1)
Quarter: 2017Q1

REPORT INFORMATION
  Report Type: Spontaneous
  Country: DE (occurrence: DE)
  Receive Date: 20170302
  Receipt Date: 20170302
  Transmission Date: 20170428
  Serious: Yes (Other)
  Sender: FDA-Public Use
  Company Number: DE-ABBVIE-17P-062-1894376-00

PATIENT
  Sex: Female

DRUGS (1)
  1. ERGENYL CHRONO [Suspect]
     Active Substance: VALPROIC ACID
     Indication: PRODUCT USED FOR UNKNOWN INDICATION
     Dosage: EXTENDED RELEASE
     Route: 048

REACTIONS (5)
  - Oedema [Unknown]
  - Blood albumin decreased [Unknown]
  - Seizure [Unknown]
  - Pulmonary oedema [Unknown]
  - Malaise [Unknown]
